FAERS Safety Report 11933085 (Version 1)
Quarter: 2016Q1

REPORT INFORMATION
  Report Type: Spontaneous
  Country: US (occurrence: US)
  Receive Date: 20160121
  Receipt Date: 20160121
  Transmission Date: 20160526
  Serious: Yes (Death, Other)
  Sender: FDA-Public Use
  Company Number: US-BRISTOL-MYERS SQUIBB COMPANY-BMS-2016-002606

PATIENT
  Age: 78 Year
  Sex: Female

DRUGS (3)
  1. OPDIVO [Suspect]
     Active Substance: NIVOLUMAB
     Indication: LUNG NEOPLASM MALIGNANT
     Dosage: 118.5 MG, UNK
     Route: 065
     Dates: start: 20150707
  2. OPDIVO [Suspect]
     Active Substance: NIVOLUMAB
     Dosage: 118.5 MG, UNK
     Route: 065
     Dates: start: 20150804
  3. OPDIVO [Suspect]
     Active Substance: NIVOLUMAB
     Dosage: 118.5 MG, UNK
     Route: 065
     Dates: start: 20150721

REACTIONS (1)
  - Death [Fatal]

NARRATIVE: CASE EVENT DATE: 20151228
